FAERS Safety Report 9596537 (Version 2)
Quarter: 2013Q4

REPORT INFORMATION
  Report Type: Spontaneous
  Country: BR (occurrence: BR)
  Receive Date: 20131004
  Receipt Date: 20131004
  Transmission Date: 20140711
  Serious: Yes (Other)
  Sender: FDA-Public Use
  Company Number: BR-PFIZER INC-2013254519

PATIENT
  Age: 67 Year
  Sex: Female
  Weight: 110 kg

DRUGS (1)
  1. LYRICA [Suspect]
     Indication: NEUROPATHY PERIPHERAL
     Dosage: 75 MG (ONE CAPSULE), 2X/DAY (IN THE MORMING AND IN THE AFTERNOON)
     Route: 048
     Dates: start: 20120730, end: 20130803

REACTIONS (5)
  - Urinary retention [Unknown]
  - Spinal disorder [Unknown]
  - Blood pressure increased [Unknown]
  - Swelling [Unknown]
  - Drug ineffective [Unknown]
